FAERS Safety Report 4875656-X (Version None)
Quarter: 2006Q1

REPORT INFORMATION
  Report Type: 
  Country: None (occurrence: None)
  Receive Date: 20060105
  Receipt Date: 20051221
  Transmission Date: 20060701
  Serious: Yes (Death, Life-Threatening)
  Sender: FDA-Public Use
  Company Number: 05USA0260

PATIENT
  Age: 75 Year
  Sex: Female

DRUGS (2)
  1. AGGRASTAT [Suspect]
     Indication: CORONARY ARTERY THROMBOSIS
     Dosage: SEE IMAGE
     Dates: start: 20051211, end: 20051212
  2. RETEPLASE (RETEPLASE) [Concomitant]

REACTIONS (6)
  - BRAIN OEDEMA [None]
  - CARDIOGENIC SHOCK [None]
  - CEREBRAL HAEMATOMA [None]
  - EPISTAXIS [None]
  - MOUTH HAEMORRHAGE [None]
  - PUPILS UNEQUAL [None]
